FAERS Safety Report 7154115-8 (Version None)
Quarter: 2010Q4

REPORT INFORMATION
  Report Type: 
  Country: None (occurrence: None)
  Receive Date: 20101124
  Receipt Date: 20101112
  Transmission Date: 20110411
  Serious: Yes (Other)
  Sender: FDA-Public Use
  Company Number: 021987

PATIENT
  Sex: Male

DRUGS (2)
  1. LACOSAMIDE [Suspect]
     Indication: CONVULSION
     Dosage: (250-300 MG A DAY)
  2. LAMOTRIGINE [Concomitant]

REACTIONS (2)
  - DRUG INEFFECTIVE [None]
  - FALL [None]
